FAERS Safety Report 18606662 (Version 1)
Quarter: 2020Q4

REPORT INFORMATION
  Report Type: Spontaneous
  Country: US (occurrence: US)
  Receive Date: 20201211
  Receipt Date: 20201211
  Transmission Date: 20210114
  Serious: No
  Sender: FDA-Public Use
  Company Number: US-LUPIN PHARMACEUTICALS INC.-2020-07963

PATIENT
  Sex: Female
  Weight: 77.1 kg

DRUGS (1)
  1. ALBUTEROL SULFATE INHALATION AEROSOL, 90 MCG/ACTUATION [Suspect]
     Active Substance: ALBUTEROL SULFATE
     Indication: PRODUCT USED FOR UNKNOWN INDICATION
     Dosage: 2 DOSAGE FORM, BID (2 PUFF TWICE)
     Route: 065
     Dates: start: 202009

REACTIONS (3)
  - No adverse event [Unknown]
  - Device delivery system issue [Unknown]
  - Drug dose omission by device [Unknown]
